FAERS Safety Report 5852012-9 (Version None)
Quarter: 2008Q3

REPORT INFORMATION
  Report Type: 
  Country: None (occurrence: None)
  Receive Date: 20080820
  Receipt Date: 20080810
  Transmission Date: 20090109
  Serious: Yes (Death, Other)
  Sender: FDA-Public Use
  Company Number: US-PFIZER INC-2008066948

PATIENT
  Age: 71 Year
  Sex: Female

DRUGS (2)
  1. CELEBREX [Suspect]
  2. IBUPROFEN [Suspect]

REACTIONS (3)
  - DEATH [None]
  - RED BLOOD CELL ABNORMALITY [None]
  - WHITE BLOOD CELL DISORDER [None]
